FAERS Safety Report 18445206 (Version 1)
Quarter: 2020Q4

REPORT INFORMATION
  Report Type: Spontaneous
  Country: IN (occurrence: IN)
  Receive Date: 20201030
  Receipt Date: 20201030
  Transmission Date: 20210114
  Serious: Yes (Hospitalization, Other)
  Sender: FDA-Public Use
  Company Number: IN-GLAXOSMITHKLINE-IN2020GSK212255

PATIENT
  Age: 24 Year
  Sex: Male

DRUGS (3)
  1. DICLOFENAC [Suspect]
     Active Substance: DICLOFENAC
     Indication: ANKYLOSING SPONDYLITIS
     Dosage: 150 MG, QD (THREE DIVIDED DOSES)
     Dates: start: 20160811
  2. DICLOFENAC [Suspect]
     Active Substance: DICLOFENAC
     Indication: HLA MARKER STUDY POSITIVE
  3. DICLOFENAC [Suspect]
     Active Substance: DICLOFENAC
     Indication: BACK PAIN

REACTIONS (19)
  - Dyspnoea [Unknown]
  - Urine output decreased [Unknown]
  - End stage renal disease [Unknown]
  - Nephropathy toxic [Unknown]
  - Oedema peripheral [Unknown]
  - Blood creatinine increased [Unknown]
  - Pulmonary oedema [Unknown]
  - Pulmonary arterial hypertension [Unknown]
  - Chromaturia [Unknown]
  - Haematuria [Unknown]
  - Renal injury [Unknown]
  - Congestive cardiomyopathy [Unknown]
  - Proteinuria [Unknown]
  - Blood parathyroid hormone increased [Unknown]
  - Chronic kidney disease-mineral and bone disorder [Unknown]
  - Mitral valve incompetence [Unknown]
  - Left ventricular dysfunction [Unknown]
  - Ventricular hypokinesia [Unknown]
  - Ejection fraction decreased [Unknown]

NARRATIVE: CASE EVENT DATE: 20190224
